FAERS Safety Report 4269390-7 (Version None)
Quarter: 2004Q1

REPORT INFORMATION
  Report Type: 
  Country: None (occurrence: None)
  Receive Date: 20040113
  Receipt Date: 20031217
  Transmission Date: 20041129
  Serious: Yes (Hospitalization)
  Sender: FDA-Public Use
  Company Number: WAES 0312USA02027

PATIENT
  Sex: Male
  Weight: 114 kg

DRUGS (3)
  1. LOPID [Concomitant]
     Dates: end: 20030101
  2. ZOCOR [Suspect]
     Indication: HYPERCHOLESTEROLAEMIA
     Route: 048
  3. ZOCOR [Suspect]
     Route: 048

REACTIONS (4)
  - ARRHYTHMIA [None]
  - HYPERKALAEMIA [None]
  - INFECTION [None]
  - RENAL FAILURE ACUTE [None]
